FAERS Safety Report 22244374 (Version 1)
Quarter: 2023Q2

REPORT INFORMATION
  Report Type: Spontaneous
  Country: US (occurrence: None)
  Receive Date: 20230422
  Receipt Date: 20230422
  Transmission Date: 20230722
  Serious: Yes (Other)
  Sender: FDA-Public Use
  Company Number: None

PATIENT
  Age: 70 Year
  Sex: Male
  Weight: 87.75 kg

DRUGS (8)
  1. MOUNJARO [Suspect]
     Active Substance: TIRZEPATIDE
     Indication: Diabetes mellitus
     Dosage: OTHER FREQUENCY : ONCE A WEEK;?OTHER ROUTE : UNDER SKIN;?
     Route: 050
     Dates: start: 20230412, end: 20230420
  2. METFORMIN [Concomitant]
     Active Substance: METFORMIN HYDROCHLORIDE
  3. BENZEPRIL [Concomitant]
  4. HYDROCHLOROTHIAZIAZIDE [Concomitant]
  5. ATORVASTATIN CALCIUM [Concomitant]
     Active Substance: ATORVASTATIN CALCIUM
  6. FARXIGA [Concomitant]
     Active Substance: DAPAGLIFLOZIN PROPANEDIOL
  7. KERENDIA [Concomitant]
     Active Substance: FINERENONE
  8. TRESIBA [Concomitant]
     Active Substance: INSULIN DEGLUDEC

REACTIONS (5)
  - Lip swelling [None]
  - Rash [None]
  - Pruritus [None]
  - Rash papular [None]
  - Abdominal pain upper [None]

NARRATIVE: CASE EVENT DATE: 20230413
